FAERS Safety Report 15121392 (Version 6)
Quarter: 2018Q3

REPORT INFORMATION
  Report Type: Spontaneous
  Country: GB (occurrence: GB)
  Receive Date: 20180709
  Receipt Date: 20180907
  Transmission Date: 20181010
  Serious: Yes (Hospitalization, Other)
  Sender: FDA-Public Use
  Company Number: GB-PFIZER INC-2018269520

PATIENT
  Age: 26 Year
  Sex: Female

DRUGS (2)
  1. DEPO?PROVERA [Suspect]
     Active Substance: MEDROXYPROGESTERONE ACETATE
     Indication: CONTRACEPTION
     Dosage: UNK
     Route: 051
     Dates: start: 20150901
  2. DEPO?PROVERA [Suspect]
     Active Substance: MEDROXYPROGESTERONE ACETATE
     Dosage: UNK
     Route: 051
     Dates: end: 20160306

REACTIONS (9)
  - Unintended pregnancy [Unknown]
  - Malaise [Unknown]
  - Urinary incontinence [Unknown]
  - Haemorrhage [Unknown]
  - Premature rupture of membranes [Unknown]
  - Mass [Unknown]
  - Drug ineffective [Unknown]
  - Fatigue [Unknown]
  - Bladder prolapse [Unknown]

NARRATIVE: CASE EVENT DATE: 20151018
